FAERS Safety Report 9137558 (Version 1)
Quarter: 2013Q1

REPORT INFORMATION
  Report Type: Report from Study
  Country: US (occurrence: US)
  Receive Date: 20130304
  Receipt Date: 20130304
  Transmission Date: 20140127
  Serious: Yes (Hospitalization)
  Sender: FDA-Public Use
  Company Number: US-ABBOTT-13P-163-1054486-00

PATIENT
  Age: 72 Year
  Sex: Female

DRUGS (6)
  1. ZEMPLAR [Suspect]
     Indication: RENAL FAILURE
     Dates: start: 2009, end: 201208
  2. ZEMPLAR [Suspect]
     Dosage: 1 MCG 3X PER WEEK
     Dates: start: 201208, end: 20130207
  3. ZEMPLAR [Suspect]
     Dates: start: 20130208
  4. UNKNOWN BLOOD PRESSURE MEDICATIONS [Concomitant]
     Indication: PRODUCT USED FOR UNKNOWN INDICATION
  5. UNKNOWN INHALER [Concomitant]
     Indication: EMPHYSEMA
  6. UNKNOWN NEBULIZER [Concomitant]
     Indication: EMPHYSEMA

REACTIONS (3)
  - Gastric haemorrhage [Recovered/Resolved]
  - Fatigue [Recovering/Resolving]
  - Renal impairment [Unknown]
